FAERS Safety Report 4539375-1 (Version None)
Quarter: 2004Q4

REPORT INFORMATION
  Report Type: 
  Country: None (occurrence: None)
  Receive Date: 20041222
  Receipt Date: 20041209
  Transmission Date: 20050328
  Serious: Yes (Hospitalization, Other)
  Sender: FDA-Public Use
  Company Number: 2004-05187

PATIENT
  Age: 21 Year
  Sex: Female

DRUGS (1)
  1. METFORMIN HCL [Suspect]
     Indication: SUICIDE ATTEMPT
     Dosage: 53 TABLET, SINGLE, ORAL
     Route: 048

REACTIONS (3)
  - DRUG TOXICITY [None]
  - OVERDOSE [None]
  - PANCREATITIS ACUTE [None]
